FAERS Safety Report 17390252 (Version 1)
Quarter: 2020Q1

REPORT INFORMATION
  Report Type: Spontaneous
  Country: US (occurrence: US)
  Receive Date: 20200207
  Receipt Date: 20200207
  Transmission Date: 20200409
  Serious: No
  Sender: FDA-Public Use
  Company Number: US-BAYER-2020-022466

PATIENT
  Sex: Female

DRUGS (5)
  1. LOSARTAN. [Concomitant]
     Active Substance: LOSARTAN
  2. MIRALAX [Suspect]
     Active Substance: POLYETHYLENE GLYCOL 3350
     Indication: GASTROINTESTINAL DISORDER
     Dosage: UNK
     Route: 048
     Dates: start: 2015
  3. MILK OF MAGNESIA ORIGINAL [Suspect]
     Active Substance: MAGNESIUM HYDROXIDE
     Dosage: A CAPFULL
     Route: 048
     Dates: start: 2015, end: 2015
  4. PHILLIPS FIBER GOOD GUMMIES PLUS ENERGY SUPPORT [Concomitant]
  5. ATENOLOL. [Concomitant]
     Active Substance: ATENOLOL

REACTIONS (3)
  - Muscle spasms [Unknown]
  - Drug ineffective [Unknown]
  - Faeces soft [None]

NARRATIVE: CASE EVENT DATE: 2015
